FAERS Safety Report 8564091-9 (Version None)
Quarter: 2012Q3

REPORT INFORMATION
  Report Type: 
  Country: None (occurrence: None)
  Receive Date: 20120723
  Receipt Date: 20120706
  Transmission Date: 20120928
  Serious: Yes (Hospitalization)
  Sender: FDA-Public Use
  Company Number: JPI-P-012871

PATIENT
  Age: 64 Year
  Sex: Female
  Weight: 45.3597 kg

DRUGS (18)
  1. HYDROCHLOROTHIAZIDE [Suspect]
     Indication: OSTEOPOROSIS
     Dosage: 12.5 MG (12.5 MG,1 IN 1 D),ORAL
     Route: 048
  2. OLANZAPINE [Concomitant]
  3. ALENDRONATE SODIUM [Concomitant]
  4. ARMODAFINIL [Suspect]
     Indication: NARCOLEPSY
     Dosage: ORAL ; (300 MG),ORAL ; 250 MG (250 MG,1 IN 1 D),ORAL
     Route: 048
     Dates: start: 20090801
  5. ARMODAFINIL [Suspect]
     Indication: NARCOLEPSY
     Dosage: ORAL ; (300 MG),ORAL ; 250 MG (250 MG,1 IN 1 D),ORAL
     Route: 048
     Dates: start: 20100101, end: 20100101
  6. ARMODAFINIL [Suspect]
     Indication: NARCOLEPSY
     Dosage: ORAL ; (300 MG),ORAL ; 250 MG (250 MG,1 IN 1 D),ORAL
     Route: 048
     Dates: start: 20100101
  7. FLUVOXAMINE MALEATE [Concomitant]
  8. VITAMIN D [Concomitant]
  9. XYREM [Suspect]
     Indication: NARCOLEPSY
     Dosage: SEE IMAGE
     Route: 048
     Dates: start: 20070524
  10. XYREM [Suspect]
     Indication: NARCOLEPSY
     Dosage: SEE IMAGE
     Route: 048
     Dates: end: 20101219
  11. XYREM [Suspect]
     Indication: NARCOLEPSY
     Dosage: SEE IMAGE
     Route: 048
     Dates: start: 20070412, end: 20070515
  12. XYREM [Suspect]
     Indication: NARCOLEPSY
     Dosage: SEE IMAGE
     Route: 048
     Dates: start: 20060524, end: 20060901
  13. XYREM [Suspect]
     Indication: NARCOLEPSY
     Dosage: SEE IMAGE
     Route: 048
     Dates: start: 20070329, end: 20070411
  14. XYREM [Suspect]
     Indication: NARCOLEPSY
     Dosage: SEE IMAGE
     Route: 048
     Dates: start: 20070516, end: 20070523
  15. XYREM [Suspect]
     Indication: NARCOLEPSY
     Dosage: SEE IMAGE
     Route: 048
     Dates: start: 20100501, end: 20100101
  16. XYREM [Suspect]
     Indication: NARCOLEPSY
     Dosage: SEE IMAGE
     Route: 048
     Dates: start: 20101221
  17. FLUOXETINE HCL [Concomitant]
  18. SIMVASTATIN [Concomitant]

REACTIONS (20)
  - TREMOR [None]
  - GAIT DISTURBANCE [None]
  - ANXIETY [None]
  - OSTEOPOROSIS [None]
  - SOMNOLENCE [None]
  - FEELING ABNORMAL [None]
  - BALANCE DISORDER [None]
  - DISORIENTATION [None]
  - CIRCADIAN RHYTHM SLEEP DISORDER [None]
  - DISTURBANCE IN ATTENTION [None]
  - ASTHENIA [None]
  - CONDITION AGGRAVATED [None]
  - HYPONATRAEMIA [None]
  - FALL [None]
  - JOINT INJURY [None]
  - URINE OUTPUT DECREASED [None]
  - OEDEMA PERIPHERAL [None]
  - EYELID OEDEMA [None]
  - ECONOMIC PROBLEM [None]
  - DRUG DOSE OMISSION [None]
